FAERS Safety Report 14441220 (Version 1)
Quarter: 2018Q1

REPORT INFORMATION
  Report Type: Spontaneous
  Country: JP (occurrence: JP)
  Receive Date: 20180125
  Receipt Date: 20180125
  Transmission Date: 20180509
  Serious: Yes (Death)
  Sender: FDA-Public Use
  Company Number: JP-INCYTE CORPORATION-2018IN000564

PATIENT

DRUGS (1)
  1. JAKAVI [Suspect]
     Active Substance: RUXOLITINIB
     Indication: POLYCYTHAEMIA VERA
     Dosage: 5 MG, UNK
     Route: 048
     Dates: start: 20180119

REACTIONS (1)
  - Polycythaemia vera [Fatal]

NARRATIVE: CASE EVENT DATE: 20180119
